FAERS Safety Report 17819751 (Version 1)
Quarter: 2020Q2

REPORT INFORMATION
  Report Type: Spontaneous
  Country: US (occurrence: US)
  Receive Date: 20200524
  Receipt Date: 20200524
  Transmission Date: 20200714
  Serious: Yes (Hospitalization)
  Sender: FDA-Public Use
  Company Number: US-ACTELION-A-CH2020-205258

PATIENT
  Age: 66 Year
  Sex: Female
  Weight: 101 kg

DRUGS (14)
  1. SELEXIPAG [Suspect]
     Active Substance: SELEXIPAG
     Indication: PULMONARY ARTERIAL HYPERTENSION
     Dosage: 600 MCG, BID
     Route: 048
  2. SELEXIPAG [Suspect]
     Active Substance: SELEXIPAG
     Dosage: 400 MCG, QD
     Route: 048
  3. METOLAZONE. [Concomitant]
     Active Substance: METOLAZONE
     Dosage: 2.5 MG, TWICE WEEKLY
  4. TREPROSTINIL. [Concomitant]
     Active Substance: TREPROSTINIL
     Dosage: 10 NG/KG, PER MIN
     Route: 042
  5. BUMETANIDE. [Concomitant]
     Active Substance: BUMETANIDE
     Dosage: 2 MG, BID
  6. SELEXIPAG [Suspect]
     Active Substance: SELEXIPAG
     Dosage: UNK MCG
     Route: 048
  7. TREPROSTINIL. [Concomitant]
     Active Substance: TREPROSTINIL
     Dosage: 43 NG/KG, PER MIN
     Route: 051
  8. SILDENAFIL. [Concomitant]
     Active Substance: SILDENAFIL
     Indication: PULMONARY ARTERIAL HYPERTENSION
     Dosage: 20 MG, TID
  9. TREPROSTINIL. [Concomitant]
     Active Substance: TREPROSTINIL
     Dosage: 40 NG/KG, PER MIN
     Route: 051
  10. APIXABAN [Concomitant]
     Active Substance: APIXABAN
     Dosage: 5 MG, BID
  11. TREPROSTINIL. [Concomitant]
     Active Substance: TREPROSTINIL
     Dosage: 5 NG/KG, PER MIN
     Route: 042
  12. AMBRISENTAN [Concomitant]
     Active Substance: AMBRISENTAN
     Indication: PULMONARY ARTERIAL HYPERTENSION
     Dosage: 10 MG, QD
  13. SELEXIPAG [Suspect]
     Active Substance: SELEXIPAG
     Dosage: 800 MCG
     Route: 048
  14. TREPROSTINIL. [Concomitant]
     Active Substance: TREPROSTINIL
     Dosage: 13 NG/KG, PER MIN
     Route: 051

REACTIONS (6)
  - Fluid overload [Unknown]
  - Oxygen saturation decreased [Unknown]
  - Pulmonary arterial hypertension [Unknown]
  - Condition aggravated [Unknown]
  - Cardiorenal syndrome [Unknown]
  - Acute kidney injury [Unknown]
